FAERS Safety Report 4673770-5 (Version None)
Quarter: 2005Q2

REPORT INFORMATION
  Report Type: 
  Country: None (occurrence: None)
  Receive Date: 20050524
  Receipt Date: 20050513
  Transmission Date: 20051028
  Serious: Yes (Death, Hospitalization)
  Sender: FDA-Public Use
  Company Number: 11095

PATIENT
  Age: 71 Year
  Sex: Male

DRUGS (1)
  1. METHOTREXATE [Suspect]
     Indication: MYCOSIS FUNGOIDES

REACTIONS (4)
  - ANTIBODY TEST POSITIVE [None]
  - CHRONIC INFLAMMATORY DEMYELINATING POLYRADICULONEUROPATHY [None]
  - METASTATIC NEOPLASM [None]
  - METASTATIC SQUAMOUS CELL CARCINOMA [None]
